FAERS Safety Report 8141559-0 (Version None)
Quarter: 2012Q1

REPORT INFORMATION
  Report Type: 
  Country: None (occurrence: None)
  Receive Date: 20120103
  Receipt Date: 20120103
  Transmission Date: 20120608
  Serious: No
  Sender: FDA-Public Use
  Company Number: AE-2011-002622

PATIENT
  Age: 52 Year
  Sex: Male
  Weight: 76.6579 kg

DRUGS (3)
  1. INCIVEK [Suspect]
     Dosage: 2250 MG (750 MG,1 IN 8 HR),ORAL
     Route: 048
     Dates: start: 20110812
  2. PEGASYS [Concomitant]
  3. RIBAVIRIN [Concomitant]

REACTIONS (6)
  - BURNING SENSATION [None]
  - ANAL PRURITUS [None]
  - RASH [None]
  - DRY SKIN [None]
  - EYE SWELLING [None]
  - PRURITUS GENERALISED [None]
